FAERS Safety Report 6630535-2 (Version None)
Quarter: 2010Q1

REPORT INFORMATION
  Report Type: 
  Country: None (occurrence: None)
  Receive Date: 20100311
  Receipt Date: 20090625
  Transmission Date: 20100710
  Serious: No
  Sender: FDA-Public Use
  Company Number: US-BIOGENIDEC-2009BI019893

PATIENT
  Sex: Female

DRUGS (1)
  1. AVONEX [Suspect]
     Indication: MULTIPLE SCLEROSIS
     Route: 030
     Dates: start: 20090512

REACTIONS (5)
  - ALCOHOL PROBLEM [None]
  - FATIGUE [None]
  - PARAESTHESIA [None]
  - PRURITUS [None]
  - TINNITUS [None]
